FAERS Safety Report 22336705 (Version 1)
Quarter: 2023Q2

REPORT INFORMATION
  Report Type: Spontaneous
  Country: US (occurrence: US)
  Receive Date: 20230518
  Receipt Date: 20230518
  Transmission Date: 20230721
  Serious: No
  Sender: FDA-Public Use
  Company Number: US-BRISTOL-MYERS SQUIBB COMPANY-2023-069319

PATIENT
  Age: 70 Year
  Sex: Female
  Weight: 74.8 kg

DRUGS (1)
  1. LENALIDOMIDE [Suspect]
     Active Substance: LENALIDOMIDE
     Indication: Plasma cell myeloma
     Dosage: FREQ - DAILY 1-21, THEN 7 DAYS OFF
     Route: 048
     Dates: start: 20230331

REACTIONS (1)
  - Blood potassium decreased [Not Recovered/Not Resolved]
